FAERS Safety Report 6241495-0 (Version None)
Quarter: 2009Q2

REPORT INFORMATION
  Report Type: 
  Country: None (occurrence: None)
  Receive Date: 20090623
  Receipt Date: 20090529
  Transmission Date: 20091009
  Serious: No
  Sender: FDA-Public Use
  Company Number: US-ROCHE-635576

PATIENT
  Age: 39 Year
  Sex: Female

DRUGS (1)
  1. TAMIFLU [Suspect]
     Route: 065
     Dates: start: 20090524

REACTIONS (2)
  - NO ADVERSE EVENT [None]
  - PREGNANCY [None]
